FAERS Safety Report 21141363 (Version 1)
Quarter: 2022Q3

REPORT INFORMATION
  Report Type: Spontaneous
  Country: US (occurrence: US)
  Receive Date: 20220728
  Receipt Date: 20220728
  Transmission Date: 20221026
  Serious: Yes (Hospitalization)
  Sender: FDA-Public Use
  Company Number: US-TERSERA THERAPEUTICS LLC-2022TRS003020

PATIENT

DRUGS (12)
  1. PRIALT [Suspect]
     Active Substance: ZICONOTIDE ACETATE
     Indication: Back pain
     Dosage: 2.87491 MCG/DAY (CONCENTRATION: 5 MCG)
     Route: 037
  2. PRIALT [Suspect]
     Active Substance: ZICONOTIDE ACETATE
     Dosage: 3.31173 MCG/DAY (CONCENTRATION: 5 MCG)
     Route: 037
  3. PRIALT [Suspect]
     Active Substance: ZICONOTIDE ACETATE
     Dosage: (DECREASED DOSE)
     Route: 037
  4. BUPIVACAINE [Suspect]
     Active Substance: BUPIVACAINE
     Indication: Back pain
     Dosage: 6.89978 MG/DAY (CONCENTRATION: 12 MG)
     Route: 037
  5. BUPIVACAINE [Suspect]
     Active Substance: BUPIVACAINE
     Dosage: 7.94816 MG/DAY (CONCENTRATION: 12 MG)
     Route: 037
  6. BUPIVACAINE [Suspect]
     Active Substance: BUPIVACAINE
     Dosage: (DECREASED DOSE)
     Route: 037
  7. MORPHINE [Suspect]
     Active Substance: MORPHINE
     Indication: Back pain
     Dosage: 4.59985 MG, QD (CONCENTRATION: 8 MG)
     Route: 037
  8. MORPHINE [Suspect]
     Active Substance: MORPHINE
     Dosage: 5.29877 MG, QD (CONCENTRATION: 8 MG)
     Route: 037
  9. MORPHINE [Suspect]
     Active Substance: MORPHINE
     Dosage: (DECREASED DOSE)
     Route: 037
  10. ACETAMINOPHEN\HYDROCODONE [Concomitant]
     Active Substance: ACETAMINOPHEN\HYDROCODONE
     Indication: Product used for unknown indication
     Dosage: UNK
     Route: 065
     Dates: start: 20220608
  11. XANAX [Concomitant]
     Active Substance: ALPRAZOLAM
     Indication: Product used for unknown indication
     Dosage: UNK
     Route: 065
     Dates: start: 20220608
  12. ZOFRAN [Concomitant]
     Active Substance: ONDANSETRON HYDROCHLORIDE
     Indication: Product used for unknown indication
     Dosage: UNK
     Route: 065
     Dates: start: 20220608

REACTIONS (10)
  - Hot flush [Recovered/Resolved]
  - Dysgeusia [Recovered/Resolved]
  - Parosmia [Recovered/Resolved]
  - Hypoaesthesia [Recovered/Resolved]
  - Chills [Recovered/Resolved]
  - Tremor [Recovered/Resolved]
  - Hyperhidrosis [Recovered/Resolved]
  - Overdose [Unknown]
  - Withdrawal syndrome [Recovered/Resolved]
  - Off label use [Unknown]

NARRATIVE: CASE EVENT DATE: 20220517
